FAERS Safety Report 5524030-1 (Version None)
Quarter: 2007Q4

REPORT INFORMATION
  Report Type: 
  Country: None (occurrence: None)
  Receive Date: 20071121
  Receipt Date: 20071116
  Transmission Date: 20080405
  Serious: Yes (Other)
  Sender: FDA-Public Use
  Company Number: US-BOEHRINGER INGELHEIM PHARMACEUTICALS, INC.-2007-BP-24878BP

PATIENT
  Sex: Male

DRUGS (5)
  1. FLOMAX [Suspect]
     Indication: BENIGN PROSTATIC HYPERPLASIA
     Route: 048
     Dates: start: 20000101
  2. VASOTEC [Concomitant]
     Indication: BLOOD PRESSURE INCREASED
     Route: 048
  3. HYGROTON [Concomitant]
     Indication: BLOOD PRESSURE INCREASED
     Route: 048
  4. XALATAN [Concomitant]
     Indication: GLAUCOMA
  5. COSOPT [Concomitant]
     Indication: GLAUCOMA

REACTIONS (1)
  - PROSTATE CANCER [None]
